FAERS Safety Report 14870336 (Version 1)
Quarter: 2018Q2

REPORT INFORMATION
  Report Type: Report from Study
  Country: US (occurrence: US)
  Receive Date: 20180509
  Receipt Date: 20180509
  Transmission Date: 20180711
  Serious: Yes (Other)
  Sender: FDA-Public Use
  Company Number: PHEH2018US016486

PATIENT
  Sex: Male

DRUGS (1)
  1. ENTRESTO [Suspect]
     Active Substance: SACUBITRIL\VALSARTAN
     Indication: PRODUCT USED FOR UNKNOWN INDICATION
     Route: 048

REACTIONS (8)
  - Retinal detachment [Unknown]
  - Diarrhoea [Unknown]
  - Cardiac valve disease [Unknown]
  - Fatigue [Unknown]
  - Blood potassium increased [Unknown]
  - Cough [Unknown]
  - Underweight [Unknown]
  - Pollakiuria [Unknown]
